FAERS Safety Report 23247214 (Version 1)
Quarter: 2023Q4

REPORT INFORMATION
  Report Type: Report from Study
  Country: AU (occurrence: AU)
  Receive Date: 20231130
  Receipt Date: 20231130
  Transmission Date: 20240110
  Serious: Yes (Hospitalization)
  Sender: FDA-Public Use
  Company Number: AU-PFIZER INC-PV202300149063

PATIENT
  Age: 35 Year
  Sex: Female
  Weight: 65 kg

DRUGS (9)
  1. DARATUMUMAB [Suspect]
     Active Substance: DARATUMUMAB
     Indication: Plasma cell myeloma
     Dosage: WEEKLY
     Route: 058
     Dates: start: 20230828
  2. LENALIDOMIDE [Suspect]
     Active Substance: LENALIDOMIDE
     Indication: Plasma cell myeloma
     Dosage: DAILY
     Route: 048
     Dates: start: 20230828
  3. ELRANATAMAB [Suspect]
     Active Substance: ELRANATAMAB
     Indication: Plasma cell myeloma
     Dosage: WEEKLY
     Route: 058
     Dates: start: 20230814
  4. DEXAMETHASONE [Suspect]
     Active Substance: DEXAMETHASONE
     Indication: Plasma cell myeloma
     Dosage: WEEKLY
     Route: 048
     Dates: start: 20230814
  5. LORATADINE [Concomitant]
     Active Substance: LORATADINE
     Indication: Prophylaxis
     Dosage: WEEKLY
     Route: 048
     Dates: start: 20230814
  6. IRON [Concomitant]
     Active Substance: IRON
     Indication: Anaemia prophylaxis
     Dosage: 1 TABLET, EVERY SECOND DAY
     Route: 048
     Dates: start: 20230801
  7. ONDANSETRON [Concomitant]
     Active Substance: ONDANSETRON
     Indication: Nausea
     Dosage: 8 MG, WEEKLY
     Route: 048
     Dates: start: 20230627
  8. CODEINE [Concomitant]
     Active Substance: CODEINE
     Indication: Analgesic therapy
     Dosage: 30 MG, PRN
     Route: 048
     Dates: start: 2021
  9. IBUPROFEN [Concomitant]
     Active Substance: IBUPROFEN
     Indication: Analgesic therapy
     Dosage: 200 MG, PRN
     Route: 048
     Dates: start: 2008

REACTIONS (1)
  - Cytokine release syndrome [Unknown]

NARRATIVE: CASE EVENT DATE: 20230830
